FAERS Safety Report 20655141 (Version 3)
Quarter: 2022Q4

REPORT INFORMATION
  Report Type: Spontaneous
  Country: US (occurrence: None)
  Receive Date: 20220330
  Receipt Date: 20221014
  Transmission Date: 20230113
  Serious: Yes (Hospitalization)
  Sender: FDA-Public Use
  Company Number: 2022A129303

PATIENT

DRUGS (10)
  1. EVUSHELD [Suspect]
     Active Substance: CILGAVIMAB\TIXAGEVIMAB
     Dosage: CILGAVIMAB, TIXAGEVIMAB 150 MG UNKNOWN
     Route: 030
     Dates: start: 20220120
  2. CYTARABINE [Suspect]
     Active Substance: CYTARABINE
     Indication: Acute myeloid leukaemia
     Dosage: 100 MG / M2, 10 DOSES
     Route: 065
     Dates: start: 20211222, end: 20211226
  3. CYTARABINE [Suspect]
     Active Substance: CYTARABINE
     Indication: FLT3 gene mutation
     Dosage: 100 MG / M2, 10 DOSES
     Route: 065
     Dates: start: 20211222, end: 20211226
  4. CILGAVIMAB [Suspect]
     Active Substance: CILGAVIMAB
     Dosage: 150.0MG UNKNOWN
     Route: 030
     Dates: start: 20220120
  5. GILTERITINIB [Suspect]
     Active Substance: GILTERITINIB
     Indication: Acute myeloid leukaemia
     Route: 065
     Dates: start: 20211227, end: 20220223
  6. GILTERITINIB [Suspect]
     Active Substance: GILTERITINIB
     Indication: FLT3 gene mutation
     Route: 065
     Dates: start: 20211227, end: 20220223
  7. ETOPOSIDE [Suspect]
     Active Substance: ETOPOSIDE
     Indication: Acute myeloid leukaemia
     Dosage: 260 MG, CYCLIC 1-5 DAYS
     Route: 042
     Dates: start: 20211222, end: 20211226
  8. ETOPOSIDE [Suspect]
     Active Substance: ETOPOSIDE
     Indication: FLT3 gene mutation
     Dosage: 260 MG, CYCLIC 1-5 DAYS
     Route: 042
     Dates: start: 20211222, end: 20211226
  9. INFLUENZA VIRUS VACCINE [Suspect]
     Active Substance: INFLUENZA VIRUS VACCINE
     Dosage: 1 DOSE5.0ML UNKNOWN
     Route: 030
     Dates: start: 20211029
  10. TIXAGEVIMAB [Suspect]
     Active Substance: TIXAGEVIMAB
     Dosage: 150.0MG UNKNOWN
     Route: 030
     Dates: start: 20220120

REACTIONS (2)
  - Guillain-Barre syndrome [Recovered/Resolved]
  - Muscular weakness [Recovered/Resolved]
